FAERS Safety Report 7386339-9 (Version None)
Quarter: 2011Q1

REPORT INFORMATION
  Report Type: 
  Country: None (occurrence: None)
  Receive Date: 20110323
  Receipt Date: 20110309
  Transmission Date: 20110831
  Serious: Yes (Other)
  Sender: FDA-Public Use
  Company Number: 1000017504

PATIENT
  Age: 41 Year
  Sex: Female
  Weight: 95 kg

DRUGS (8)
  1. CORTISONE (CORTISONE) [Suspect]
     Indication: MULTIPLE SCLEROSIS
     Dosage: ORAL
     Route: 048
     Dates: start: 20090101, end: 20090101
  2. PANTOPRAZOL (PANTOPRAZOLE SODIUM) (20 MILLIGRAM) (PANTOPRAZOL SODIUM) [Concomitant]
  3. VIGANTOLETTEN (COLECALCIFEROL) (1000 IU (INTERNATIONAL UNIT)) (COLECAL [Concomitant]
  4. VALETTE (CERTOSTAT) [Concomitant]
  5. IBUPROFEN (IBUPROFEN) (400 MILLIGRAM) (IBUPROFEN) [Concomitant]
  6. REBIF (INTERFERON BETA) (22 MICROGRAM) (INTERFERON BETA) [Concomitant]
  7. ESCITALOPRAM OXALATE [Suspect]
     Indication: DEPRESSION
     Dosage: 20 MG (20 MG,1 IN 1 D),ORAL
     Route: 048
     Dates: start: 20081201, end: 20100915
  8. MAGNETRANS EXTRA (MAGNESIUM OXIDE) (MAGNESIUM OXIDE) [Concomitant]

REACTIONS (4)
  - BLOOD TRIGLYCERIDES INCREASED [None]
  - HYPERHIDROSIS [None]
  - FEELING COLD [None]
  - WEIGHT INCREASED [None]
